FAERS Safety Report 23650308 (Version 1)
Quarter: 2024Q1

REPORT INFORMATION
  Report Type: Spontaneous
  Country: US (occurrence: None)
  Receive Date: 20240320
  Receipt Date: 20240320
  Transmission Date: 20240409
  Serious: No
  Sender: FDA-Public Use
  Company Number: US-ROCHE-3486969

PATIENT
  Age: 69 Year
  Sex: Male

DRUGS (8)
  1. VABYSMO [Suspect]
     Active Substance: FARICIMAB\FARICIMAB-SVOA
     Indication: Haematocrit
     Route: 065
  2. LUCENTIS [Suspect]
     Active Substance: RANIBIZUMAB
     Indication: Haematocrit
     Route: 050
  3. SUSVIMO [Suspect]
     Active Substance: RANIBIZUMAB
     Indication: Haematocrit
     Route: 065
  4. SUSVIMO [Suspect]
     Active Substance: RANIBIZUMAB
  5. SUSVIMO [Suspect]
     Active Substance: RANIBIZUMAB
  6. SUSVIMO [Suspect]
     Active Substance: RANIBIZUMAB
  7. SUSVIMO [Suspect]
     Active Substance: RANIBIZUMAB
  8. SUSVIMO [Suspect]
     Active Substance: RANIBIZUMAB

REACTIONS (2)
  - Off label use [Unknown]
  - Visual impairment [Unknown]
